FAERS Safety Report 18520023 (Version 1)
Quarter: 2020Q4

REPORT INFORMATION
  Report Type: Report from Study
  Country: None (occurrence: US)
  Receive Date: 20201119
  Receipt Date: 20201119
  Transmission Date: 20210114
  Serious: Yes (Death)
  Sender: FDA-Public Use
  Company Number: US-ABBVIE-20K-163-3657253-00

PATIENT
  Age: 83 Year
  Sex: Female

DRUGS (3)
  1. VENCLEXTA [Suspect]
     Active Substance: VENETOCLAX
     Dosage: THEN 2 TABLETS FOR 7 DAYS
     Route: 048
     Dates: start: 20201021, end: 20201028
  2. VENCLEXTA [Suspect]
     Active Substance: VENETOCLAX
     Indication: ACUTE MYELOID LEUKAEMIA
     Dosage: TAKE 1 TABLET BY MOUTH FOR 7 DAYS
     Route: 048
     Dates: start: 20201013, end: 20201020
  3. VENCLEXTA [Suspect]
     Active Substance: VENETOCLAX
     Dosage: THEN 4 TABLETS DAILY FOR 14 DAYS TAKE WITH BREAKFAST
     Route: 048
     Dates: start: 20201029, end: 20201112

REACTIONS (1)
  - Death [Fatal]

NARRATIVE: CASE EVENT DATE: 20201101
